FAERS Safety Report 20709623 (Version 5)
Quarter: 2025Q1

REPORT INFORMATION
  Report Type: Spontaneous
  Country: CA (occurrence: CA)
  Receive Date: 20220414
  Receipt Date: 20250207
  Transmission Date: 20250409
  Serious: Yes (Death, Hospitalization)
  Sender: ROCHE
  Company Number: CA-ROCHE-3073057

PATIENT
  Age: 75 Year
  Sex: Female

DRUGS (4)
  1. RITUXIMAB [Suspect]
     Active Substance: RITUXIMAB
     Indication: Rheumatoid arthritis
     Route: 040
  2. ACETAMINOPHEN [Concomitant]
     Active Substance: ACETAMINOPHEN
     Indication: Product used for unknown indication
     Route: 048
  3. DIPHENHYDRAMINE HYDROCHLORIDE [Concomitant]
     Active Substance: DIPHENHYDRAMINE HYDROCHLORIDE
     Indication: Product used for unknown indication
     Route: 065
  4. METHYLPREDNISOLONE [Concomitant]
     Active Substance: METHYLPREDNISOLONE
     Indication: Product used for unknown indication
     Route: 040

REACTIONS (18)
  - Blood pressure decreased [Fatal]
  - Feeling abnormal [Fatal]
  - Genital burning sensation [Fatal]
  - Headache [Fatal]
  - Heart rate increased [Fatal]
  - Herpes zoster [Fatal]
  - Hypotension [Fatal]
  - Injection site haemorrhage [Fatal]
  - Injection site pain [Fatal]
  - Musculoskeletal discomfort [Fatal]
  - Renal disorder [Fatal]
  - Somnolence [Fatal]
  - Migraine [Fatal]
  - Therapeutic product effect incomplete [Fatal]
  - Pneumonia [Fatal]
  - Surgery [Fatal]
  - Hospitalisation [Fatal]
  - Death [Fatal]
